FAERS Safety Report 9083054 (Version 1)
Quarter: 2013Q1

REPORT INFORMATION
  Report Type: Report from Study
  Country: US (occurrence: US)
  Receive Date: 20130130
  Receipt Date: 20130130
  Transmission Date: 20140127
  Serious: No
  Sender: FDA-Public Use
  Company Number: US-ABBOTT-12P-163-0980415-00

PATIENT
  Age: 53 Year
  Sex: Female

DRUGS (9)
  1. HUMIRA [Suspect]
     Indication: CROHN^S DISEASE
     Dates: start: 20120815
  2. VALTREX [Concomitant]
     Indication: HERPES VIRUS INFECTION
  3. PANTOPRAZOLE [Concomitant]
     Indication: GASTROOESOPHAGEAL REFLUX DISEASE
  4. COLCRYS [Concomitant]
     Indication: BEHCET^S SYNDROME
  5. ESTROGEN/PROGESTERONE [Concomitant]
     Indication: HORMONE REPLACEMENT THERAPY
     Dosage: HALF TAB DAILY
  6. METOPROLOL [Concomitant]
     Indication: BLOOD PRESSURE
  7. CITALOPRAM [Concomitant]
     Indication: HOT FLUSH
  8. ASACOL [Concomitant]
     Indication: CROHN^S DISEASE
  9. IMURAN [Concomitant]
     Indication: CROHN^S DISEASE

REACTIONS (1)
  - Epistaxis [Recovered/Resolved]
